FAERS Safety Report 17194346 (Version 1)
Quarter: 2019Q4

REPORT INFORMATION
  Report Type: Spontaneous
  Country: US (occurrence: US)
  Receive Date: 20191202
  Receipt Date: 20191202
  Transmission Date: 20200122
  Serious: No
  Sender: FDA-Public Use
  Company Number: None

PATIENT
  Age: 50 Year
  Sex: Female

DRUGS (5)
  1. OMPERAZOLE [Concomitant]
     Active Substance: OMEPRAZOLE
  2. XARELTO [Concomitant]
     Active Substance: RIVAROXABAN
  3. OCALIVA [Suspect]
     Active Substance: OBETICHOLIC ACID
     Indication: PRIMARY BILIARY CHOLANGITIS
     Route: 048
     Dates: start: 20191031
  4. LISINIPRIL [Concomitant]
     Active Substance: LISINOPRIL
  5. ACTIGALL [Concomitant]
     Active Substance: URSODIOL

REACTIONS (2)
  - Dizziness [None]
  - Nausea [None]

NARRATIVE: CASE EVENT DATE: 201911
